FAERS Safety Report 15865611 (Version 1)
Quarter: 2019Q1

REPORT INFORMATION
  Report Type: Spontaneous
  Country: US (occurrence: US)
  Receive Date: 20190125
  Receipt Date: 20190125
  Transmission Date: 20190417
  Serious: No
  Sender: FDA-Public Use
  Company Number: US-009507513-1812USA012595

PATIENT
  Age: 56 Year
  Sex: Male

DRUGS (8)
  1. LINEZOLID. [Concomitant]
     Active Substance: LINEZOLID
     Indication: CELLULITIS ORBITAL
     Dosage: 600 MILLIGRAM, TID
  2. NEOMYCIN. [Concomitant]
     Active Substance: NEOMYCIN
     Indication: MYCOBACTERIUM CHELONAE INFECTION
  3. PRIMAXIN IV [Suspect]
     Active Substance: CILASTATIN SODIUM\IMIPENEM
     Indication: CELLULITIS ORBITAL
     Dosage: 1000MG, TID
     Route: 042
  4. POLYMYXIN B SULFATE. [Concomitant]
     Active Substance: POLYMYXIN B SULFATE
     Indication: MYCOBACTERIUM CHELONAE INFECTION
  5. CLARITHROMYCIN. [Concomitant]
     Active Substance: CLARITHROMYCIN
     Indication: CELLULITIS ORBITAL
     Dosage: 500 MILLIGRAM, BID
  6. DEXAMETHASONE. [Concomitant]
     Active Substance: DEXAMETHASONE
     Indication: MYCOBACTERIUM CHELONAE INFECTION
  7. GENTAMICIN. [Concomitant]
     Active Substance: GENTAMICIN
     Indication: EYE INFECTION BACTERIAL
     Route: 057
  8. VANCOMYCIN [Concomitant]
     Active Substance: VANCOMYCIN
     Indication: EYE INFECTION BACTERIAL
     Route: 057

REACTIONS (1)
  - Product use in unapproved indication [Unknown]
